FAERS Safety Report 6406103-4 (Version None)
Quarter: 2009Q4

REPORT INFORMATION
  Report Type: 
  Country: None (occurrence: None)
  Receive Date: 20091019
  Receipt Date: 20091008
  Transmission Date: 20100525
  Serious: Yes (Hospitalization)
  Sender: FDA-Public Use
  Company Number: JP-ASTRAZENECA-2009SE09080

PATIENT
  Age: 55 Year
  Sex: Male

DRUGS (6)
  1. FOSCAVIR [Suspect]
     Indication: CYTOMEGALOVIRUS VIRAEMIA
     Dosage: DOSE UNKNOWN
     Route: 041
     Dates: start: 20090812
  2. DENOSINE [Suspect]
     Route: 041
     Dates: start: 20090810, end: 20090811
  3. ITRIZOLE [Concomitant]
     Route: 048
     Dates: start: 20090105
  4. BAKTAR [Concomitant]
     Route: 048
     Dates: start: 20090615
  5. PREDNISOLONE [Concomitant]
     Route: 048
     Dates: start: 20090808
  6. PROGRAF [Concomitant]
     Route: 048
     Dates: start: 20090810

REACTIONS (6)
  - BRADYCARDIA [None]
  - DIZZINESS [None]
  - ELECTROLYTE IMBALANCE [None]
  - ORTHOSTATIC HYPOTENSION [None]
  - PANCYTOPENIA [None]
  - VOMITING [None]
